FAERS Safety Report 7948312-9 (Version None)
Quarter: 2011Q4

REPORT INFORMATION
  Report Type: 
  Country: None (occurrence: None)
  Receive Date: 20111130
  Receipt Date: 20111116
  Transmission Date: 20120403
  Serious: Yes (Hospitalization)
  Sender: FDA-Public Use
  Company Number: FR-UCBSA-045940

PATIENT
  Age: 83 Year
  Sex: Female

DRUGS (8)
  1. URBANYL [Suspect]
     Indication: STATUS EPILEPTICUS
     Route: 048
     Dates: start: 20110627
  2. PANTOPRAZOLE SODIUM [Concomitant]
  3. KEPPRA [Suspect]
     Route: 042
     Dates: start: 20110630, end: 20110712
  4. NOVORAPID [Suspect]
     Dosage: 3 UNITS
     Route: 058
     Dates: start: 20110601, end: 20110704
  5. CALCIPARINE [Suspect]
     Dosage: 5000 IU/0.2 ML (HEPARIN)
     Route: 058
     Dates: start: 20110627, end: 20110704
  6. ACETAMINOPHEN [Suspect]
     Indication: PAIN
     Route: 048
     Dates: start: 20110702, end: 20110712
  7. ALDACETONE [Concomitant]
  8. URBANYL [Suspect]
     Dosage: 17 UNITS
     Route: 058
     Dates: start: 20110630, end: 20110704

REACTIONS (3)
  - GAMMA-GLUTAMYLTRANSFERASE INCREASED [None]
  - BLOOD ALKALINE PHOSPHATASE INCREASED [None]
  - CHOLESTASIS [None]
